FAERS Safety Report 5236589-2 (Version None)
Quarter: 2007Q1

REPORT INFORMATION
  Report Type: 
  Country: None (occurrence: None)
  Receive Date: 20070208
  Receipt Date: 20061117
  Transmission Date: 20070707
  Serious: Yes (Other)
  Sender: FDA-Public Use
  Company Number: 152450USA

PATIENT
  Age: 58 Year
  Sex: Female

DRUGS (1)
  1. METHYLDOPA [Suspect]
     Dosage: 500 MG (250 MG, 2 IN 1 D), ORAL
     Route: 048

REACTIONS (1)
  - CEREBROVASCULAR ACCIDENT [None]
